FAERS Safety Report 21098170 (Version 1)
Quarter: 2022Q3

REPORT INFORMATION
  Report Type: Spontaneous
  Country: US (occurrence: None)
  Receive Date: 20220718
  Receipt Date: 20220718
  Transmission Date: 20221027
  Serious: Yes (Death)
  Sender: FDA-Public Use
  Company Number: None

PATIENT
  Sex: Male

DRUGS (2)
  1. TREMFYA [Suspect]
     Active Substance: GUSELKUMAB
     Indication: Psoriatic arthropathy
     Dosage: INJECT 1 PEN (100MG) UNDER THE SIKIN (SUBCUTANEOUS INJECTION) EVERY 8 WEEKS?
     Route: 058
     Dates: start: 20211202
  2. TREMFYA [Suspect]
     Active Substance: GUSELKUMAB
     Dosage: OTHER QUANTITY : 1 PEN (100 MG);?OTHER FREQUENCY : EVERY 8 WEEKS;?
     Route: 058

REACTIONS (1)
  - Death [None]
